FAERS Safety Report 8065139-0 (Version None)
Quarter: 2012Q1

REPORT INFORMATION
  Report Type: 
  Country: None (occurrence: None)
  Receive Date: 20120124
  Receipt Date: 20120119
  Transmission Date: 20120608
  Serious: Yes (Hospitalization)
  Sender: FDA-Public Use
  Company Number: US-TEVA-318450USA

PATIENT
  Sex: Female
  Weight: 73.094 kg

DRUGS (8)
  1. NUVIGIL [Suspect]
     Route: 048
  2. CYMBALTA [Concomitant]
     Indication: DEPRESSION
  3. DEXILANT [Concomitant]
     Indication: OESOPHAGITIS
     Route: 048
     Dates: start: 20111101
  4. NUVIGIL [Suspect]
     Indication: SJOGREN'S SYNDROME
     Route: 048
  5. EVOXAC [Concomitant]
     Indication: SJOGREN'S SYNDROME
     Dosage: 3 TIMES A DAY
     Route: 048
     Dates: start: 20110901
  6. CYMBALTA [Concomitant]
     Indication: BONE PAIN
     Route: 048
     Dates: start: 20090101
  7. NUVIGIL [Suspect]
     Indication: RHEUMATOID ARTHRITIS
     Route: 048
     Dates: start: 20090601
  8. VICODIN [Concomitant]
     Indication: PAIN
     Route: 048
     Dates: start: 20070101

REACTIONS (5)
  - STREPTOCOCCAL INFECTION [None]
  - CONSTIPATION [None]
  - ABDOMINAL PAIN UPPER [None]
  - CANDIDIASIS [None]
  - DRUG INEFFECTIVE [None]
